FAERS Safety Report 12449113 (Version 1)
Quarter: 2016Q2

REPORT INFORMATION
  Report Type: Spontaneous
  Country: TW (occurrence: TW)
  Receive Date: 20160608
  Receipt Date: 20160608
  Transmission Date: 20160815
  Serious: Yes (Hospitalization)
  Sender: FDA-Public Use
  Company Number: TW-BRACCO-000050

PATIENT
  Age: 4 Year
  Sex: Male

DRUGS (1)
  1. BARIUM SULPHATE [Suspect]
     Active Substance: BARIUM SULFATE

REACTIONS (1)
  - Sepsis [Recovered/Resolved]
